FAERS Safety Report 7132905-5 (Version None)
Quarter: 2010Q4

REPORT INFORMATION
  Report Type: 
  Country: None (occurrence: None)
  Receive Date: 20101202
  Receipt Date: 20101119
  Transmission Date: 20110411
  Serious: No
  Sender: FDA-Public Use
  Company Number: US-PFIZER INC-US-WYE-H18326910

PATIENT
  Age: 28 Year
  Sex: Female
  Weight: 91.61 kg

DRUGS (2)
  1. PRISTIQ [Suspect]
     Indication: DEPRESSION
     Dosage: 50 MG, 1X/DAY
     Route: 048
     Dates: start: 20100101
  2. PRISTIQ [Suspect]
     Indication: ANXIETY

REACTIONS (2)
  - ANXIETY [None]
  - THINKING ABNORMAL [None]
